FAERS Safety Report 7506952-5 (Version None)
Quarter: 2011Q2

REPORT INFORMATION
  Report Type: 
  Country: None (occurrence: None)
  Receive Date: 20110418
  Receipt Date: 20110303
  Transmission Date: 20111010
  Serious: Yes (Life-Threatening, Other)
  Sender: FDA-Public Use
  Company Number: 2011027799

PATIENT
  Sex: Female
  Weight: 100 kg

DRUGS (4)
  1. LASIX [Concomitant]
  2. BERINERT [Suspect]
     Indication: HEREDITARY ANGIOEDEMA
     Dosage: SEE IMAGE
     Route: 042
     Dates: start: 20110301
  3. BERINERT [Suspect]
     Indication: HEREDITARY ANGIOEDEMA
     Dosage: SEE IMAGE
     Route: 042
     Dates: start: 20110228
  4. PROPOFOL [Concomitant]

REACTIONS (4)
  - STRIDOR [None]
  - DRUG INEFFECTIVE [None]
  - SWOLLEN TONGUE [None]
  - LARYNGEAL OEDEMA [None]
